FAERS Safety Report 24329746 (Version 1)
Quarter: 2024Q3

REPORT INFORMATION
  Report Type: Spontaneous
  Country: US (occurrence: US)
  Receive Date: 20240917
  Receipt Date: 20240917
  Transmission Date: 20241017
  Serious: No
  Sender: SANOFI AVENTIS
  Company Number: US-SA-2024SA267295

PATIENT
  Sex: Female
  Weight: 40.91 kg

DRUGS (28)
  1. DUPIXENT [Suspect]
     Active Substance: DUPILUMAB
     Indication: Dermatitis atopic
     Dosage: 300 MG, QOW
     Route: 058
  2. DUPIXENT [Suspect]
     Active Substance: DUPILUMAB
     Indication: Asthma
  3. UCERIS [Concomitant]
     Active Substance: BUDESONIDE
  4. TIZANIDINE HYDROCHLORIDE [Concomitant]
     Active Substance: TIZANIDINE HYDROCHLORIDE
  5. MEPERIDINE HYDROCHLORIDE [Concomitant]
     Active Substance: MEPERIDINE HYDROCHLORIDE
  6. DEXLANSOPRAZOLE [Concomitant]
     Active Substance: DEXLANSOPRAZOLE
  7. CORDRAN [Concomitant]
     Active Substance: FLURANDRENOLIDE
  8. LIDOCAINE [Concomitant]
     Active Substance: LIDOCAINE
  9. ESTRADIOL [Concomitant]
     Active Substance: ESTRADIOL
  10. TUSSICAPS [Concomitant]
     Active Substance: CHLORPHENIRAMINE\HYDROCODONE
  11. BETAMETHASONE DIPROPIONATE [Concomitant]
     Active Substance: BETAMETHASONE DIPROPIONATE
  12. TRIAMCINOLONE ACETONIDE [Concomitant]
     Active Substance: TRIAMCINOLONE ACETONIDE
  13. LEVALBUTEROL HYDROCHLORIDE [Concomitant]
     Active Substance: LEVALBUTEROL HYDROCHLORIDE
  14. ZOFRAN [Concomitant]
     Active Substance: ONDANSETRON HYDROCHLORIDE
  15. SYNTHROID [Concomitant]
     Active Substance: LEVOTHYROXINE SODIUM
  16. ALBUTEROL SULFATE [Concomitant]
     Active Substance: ALBUTEROL SULFATE
  17. ZOLOFT [Concomitant]
     Active Substance: SERTRALINE HYDROCHLORIDE
  18. DIFLUCAN [Concomitant]
     Active Substance: FLUCONAZOLE
  19. LOMOTIL [Concomitant]
     Active Substance: ATROPINE SULFATE\DIPHENOXYLATE HYDROCHLORIDE
  20. AMBIEN [Concomitant]
     Active Substance: ZOLPIDEM TARTRATE
  21. BOTOX [Concomitant]
     Active Substance: ONABOTULINUMTOXINA
  22. PRED FORTE [Concomitant]
     Active Substance: PREDNISOLONE ACETATE
  23. FLAXSEED [Concomitant]
     Active Substance: FLAX SEED
  24. ESTRACE [Concomitant]
     Active Substance: ESTRADIOL
  25. MINERALS\VITAMINS [Concomitant]
     Active Substance: MINERALS\VITAMINS
  26. VALTREX [Concomitant]
     Active Substance: VALACYCLOVIR HYDROCHLORIDE
  27. VITAMIN B12 [Concomitant]
     Active Substance: CYANOCOBALAMIN
  28. FLUTICASONE PROPIONATE\SALMETEROL XINAFOATE [Concomitant]
     Active Substance: FLUTICASONE PROPIONATE\SALMETEROL XINAFOATE

REACTIONS (1)
  - Injection site pain [Unknown]
